FAERS Safety Report 8142839-5 (Version None)
Quarter: 2012Q1

REPORT INFORMATION
  Report Type: 
  Country: None (occurrence: None)
  Receive Date: 20120216
  Receipt Date: 20120208
  Transmission Date: 20120608
  Serious: Yes (Hospitalization)
  Sender: FDA-Public Use
  Company Number: US-BRISTOL-MYERS SQUIBB COMPANY-16390031

PATIENT
  Age: 14 Month
  Sex: Female
  Weight: 6 kg

DRUGS (4)
  1. EMTRICITABINE [Suspect]
     Indication: HIV INFECTION
     Dosage: INTERRUPTED ON 2JUN06. LAST: 1JUN06
     Route: 048
     Dates: start: 20050621
  2. EFAVIRENZ [Suspect]
     Indication: HIV INFECTION
     Dosage: INTERRUPTED ON 2JUN06. LAST: 1JUN06
     Route: 048
     Dates: start: 20050621
  3. GABAPENTIN [Concomitant]
  4. DIDANOSINE [Suspect]
     Indication: HIV INFECTION
     Dosage: INTERRUPTED ON 2JUN06. LAST: 1JUN06
     Route: 048
     Dates: start: 20050621

REACTIONS (3)
  - ASPARTATE AMINOTRANSFERASE INCREASED [None]
  - ALANINE AMINOTRANSFERASE INCREASED [None]
  - GAMMA-GLUTAMYLTRANSFERASE INCREASED [None]
